FAERS Safety Report 5517417-4 (Version None)
Quarter: 2007Q4

REPORT INFORMATION
  Report Type: 
  Country: None (occurrence: None)
  Receive Date: 20071114
  Receipt Date: 20071105
  Transmission Date: 20080405
  Serious: Yes (Hospitalization)
  Sender: FDA-Public Use
  Company Number: US-WYE-H01052807

PATIENT
  Age: 30 Year
  Sex: Male
  Weight: 96.2 kg

DRUGS (8)
  1. RAPAMUNE [Suspect]
     Indication: PROPHYLAXIS AGAINST TRANSPLANT REJECTION
     Route: 048
     Dates: start: 20060201, end: 20071101
  2. RAPAMUNE [Suspect]
     Route: 048
     Dates: start: 20071106
  3. ENALAPRIL MALEATE [Concomitant]
     Dosage: 10 MG, FREQUENCY UNSPECIFIED
     Route: 065
  4. VALCYTE [Concomitant]
     Route: 065
  5. MYCOPHENOLATE MOFETIL [Concomitant]
     Route: 065
  6. PREDNISONE TAB [Concomitant]
     Dosage: 20 MG, FREQUENCY UNSPECIFIED
     Route: 065
  7. DILTIAZEM [Concomitant]
     Dosage: 240 MG, FREQUENCY UNSPECIFIED
     Route: 065
  8. FENOFIBRATE [Concomitant]
     Dosage: 48 MG, FREQUENCY UNSPECIFIED
     Route: 065

REACTIONS (10)
  - CONFABULATION [None]
  - CONFUSIONAL STATE [None]
  - DELUSION [None]
  - DISORIENTATION [None]
  - DISTURBANCE IN ATTENTION [None]
  - DRUG SCREEN POSITIVE [None]
  - DYSPNOEA [None]
  - MENTAL STATUS CHANGES [None]
  - PARANOIA [None]
  - WHITE BLOOD CELL COUNT INCREASED [None]
